FAERS Safety Report 15306829 (Version 4)
Quarter: 2018Q4

REPORT INFORMATION
  Report Type: Report from Study
  Country: CO (occurrence: CO)
  Receive Date: 20180822
  Receipt Date: 20181009
  Transmission Date: 20190204
  Serious: Yes (Hospitalization)
  Sender: FDA-Public Use
  Company Number: PHHY2018CO077104

PATIENT
  Sex: Female
  Weight: 56 kg

DRUGS (1)
  1. REVOLADE [Suspect]
     Active Substance: ELTROMBOPAG
     Indication: IMMUNE THROMBOCYTOPENIC PURPURA
     Dosage: 25 MG, QD
     Route: 048
     Dates: start: 20180729

REACTIONS (7)
  - Drug intolerance [Unknown]
  - Intestinal obstruction [Unknown]
  - Platelet count increased [Unknown]
  - Oedema peripheral [Recovering/Resolving]
  - Thrombosis [Unknown]
  - Abdominal pain [Unknown]
  - Ascites [Recovering/Resolving]
